FAERS Safety Report 4817418-5 (Version None)
Quarter: 2005Q4

REPORT INFORMATION
  Report Type: 
  Country: None (occurrence: None)
  Receive Date: 20051031
  Receipt Date: 20051017
  Transmission Date: 20060501
  Serious: Yes (Death)
  Sender: FDA-Public Use
  Company Number: 2005143044

PATIENT
  Age: 54 Year
  Sex: Male

DRUGS (4)
  1. FRAGMIN [Suspect]
     Indication: THROMBOSIS PROPHYLAXIS
     Dosage: 5000 I.U. (5000 I.U.,1 IN 1 D), SUBCUTANEOUS
     Route: 058
     Dates: start: 20050817, end: 20050826
  2. LENDACIN (CEFTRIAXONE) [Concomitant]
  3. DIPIDOLOR (PIRITRAMIDE) [Concomitant]
  4. ANALGIN (METAMIZOLE SODIUM) [Concomitant]

REACTIONS (1)
  - PULMONARY EMBOLISM [None]
